FAERS Safety Report 6676638-8 (Version None)
Quarter: 2010Q2

REPORT INFORMATION
  Report Type: 
  Country: None (occurrence: None)
  Receive Date: 20100409
  Receipt Date: 20100409
  Transmission Date: 20101027
  Serious: Yes (Other)
  Sender: FDA-Public Use
  Company Number: None

PATIENT
  Sex: Female
  Weight: 39.4629 kg

DRUGS (1)
  1. FLOVENT HFA [Suspect]
     Indication: EMPHYSEMA
     Dosage: 2 PUFFS TWICE DAILY INHALE
     Route: 055
     Dates: start: 20100315, end: 20100322

REACTIONS (1)
  - DYSPNOEA [None]
